FAERS Safety Report 6114939-2 (Version None)
Quarter: 2009Q1

REPORT INFORMATION
  Report Type: 
  Country: None (occurrence: None)
  Receive Date: 20090311
  Receipt Date: 20080710
  Transmission Date: 20090719
  Serious: Yes (Other)
  Sender: FDA-Public Use
  Company Number: US200805006147

PATIENT
  Age: 75 Year
  Sex: Male

DRUGS (2)
  1. GEMZAR [Suspect]
     Indication: PANCREATIC CARCINOMA
     Dates: start: 20060101
  2. CISPLATIN [Concomitant]

REACTIONS (7)
  - ABDOMINAL PAIN [None]
  - ASCITES [None]
  - BACK PAIN [None]
  - DISCOMFORT [None]
  - MALIGNANT NEOPLASM PROGRESSION [None]
  - PANCREATIC NEOPLASM [None]
  - PULMONARY MASS [None]
